FAERS Safety Report 12996557 (Version 4)
Quarter: 2017Q3

REPORT INFORMATION
  Report Type: Spontaneous
  Country: JP (occurrence: JP)
  Receive Date: 20161204
  Receipt Date: 20170706
  Transmission Date: 20171127
  Serious: Yes (Hospitalization, Other)
  Sender: FDA-Public Use
  Company Number: JP-GLAXOSMITHKLINE-JP2016JPN175970

PATIENT
  Age: 46 Year
  Sex: Male
  Weight: 50 kg

DRUGS (10)
  1. BIPERIDEN HYDROCHLORIDE [Concomitant]
     Active Substance: BIPERIDEN HYDROCHLORIDE
     Dosage: UNK
  2. VALERIN [Suspect]
     Active Substance: VALPROATE SODIUM
     Indication: AFFECT LABILITY
     Dosage: 200 MG, TID
     Route: 048
     Dates: end: 20160325
  3. SENNOSIDE [Concomitant]
     Active Substance: SENNOSIDES
     Dosage: UNK
  4. REBAMIPIDE [Concomitant]
     Active Substance: REBAMIPIDE
     Dosage: UNK
  5. BROTIZOLAM [Concomitant]
     Active Substance: BROTIZOLAM
     Dosage: UNK
  6. RISPERIDONE. [Concomitant]
     Active Substance: RISPERIDONE
     Dosage: UNK
  7. LAMICTAL [Suspect]
     Active Substance: LAMOTRIGINE
     Indication: AFFECT LABILITY
     Dosage: 25 MG, BID
     Route: 048
     Dates: start: 20160306, end: 20160320
  8. LAMICTAL [Suspect]
     Active Substance: LAMOTRIGINE
     Indication: SCHIZOPHRENIA
     Dosage: 25 MG, QD
     Route: 048
     Dates: start: 20160221, end: 20160305
  9. MAGNESIUM OXIDE. [Concomitant]
     Active Substance: MAGNESIUM OXIDE
     Dosage: UNK
  10. HALOPERIDOL. [Concomitant]
     Active Substance: HALOPERIDOL
     Dosage: UNK

REACTIONS (13)
  - Rash generalised [Recovered/Resolved]
  - Ocular hyperaemia [Unknown]
  - Incorrect dose administered [Unknown]
  - Rash maculo-papular [Unknown]
  - Face oedema [Unknown]
  - Human herpesvirus 6 infection [Unknown]
  - Pyrexia [Unknown]
  - Erythema [Unknown]
  - Drug eruption [Recovered/Resolved]
  - Blister [Unknown]
  - Drug reaction with eosinophilia and systemic symptoms [Recovered/Resolved]
  - Erythema of eyelid [Unknown]
  - Off label use [Unknown]

NARRATIVE: CASE EVENT DATE: 20160221
